FAERS Safety Report 23388923 (Version 1)
Quarter: 2024Q1

REPORT INFORMATION
  Report Type: Spontaneous
  Country: US (occurrence: US)
  Receive Date: 20240110
  Receipt Date: 20240110
  Transmission Date: 20240409
  Serious: No
  Sender: FDA-Public Use
  Company Number: US-GE HEALTHCARE-2023CSU011183

PATIENT
  Age: 24 Year
  Sex: Female
  Weight: 168 kg

DRUGS (2)
  1. OMNIPAQUE [Suspect]
     Active Substance: IOHEXOL
     Indication: Computerised tomogram neck
     Dosage: 100 ML, SINGLE
     Route: 042
     Dates: start: 20231204, end: 20231204
  2. OMNIPAQUE [Suspect]
     Active Substance: IOHEXOL
     Indication: Abscess

REACTIONS (3)
  - Dysphonia [Recovered/Resolved]
  - Throat clearing [Recovered/Resolved]
  - Sensation of foreign body [Recovered/Resolved]

NARRATIVE: CASE EVENT DATE: 20231204
